FAERS Safety Report 15542320 (Version 3)
Quarter: 2019Q1

REPORT INFORMATION
  Report Type: Spontaneous
  Country: CA (occurrence: CA)
  Receive Date: 20181023
  Receipt Date: 20190121
  Transmission Date: 20190417
  Serious: Yes (Hospitalization, Other)
  Sender: FDA-Public Use
  Company Number: CA-PFIZER INC-2018425442

PATIENT
  Age: 53 Year
  Sex: Male

DRUGS (4)
  1. IRON COMPLEX [IRON] [Concomitant]
     Indication: MINERAL SUPPLEMENTATION
     Dosage: UNK
  2. PREDNISONE. [Concomitant]
     Active Substance: PREDNISONE
     Dosage: UNK
  3. SULFASALAZINE. [Suspect]
     Active Substance: SULFASALAZINE
     Dosage: UNK
  4. AZATHIOPRINE. [Concomitant]
     Active Substance: AZATHIOPRINE
     Dosage: UNK

REACTIONS (2)
  - Colitis ulcerative [Unknown]
  - Thrombosis [Unknown]

NARRATIVE: CASE EVENT DATE: 201809
